FAERS Safety Report 14372198 (Version 1)
Quarter: 2018Q1

REPORT INFORMATION
  Report Type: Spontaneous
  Country: GR (occurrence: GR)
  Receive Date: 20180110
  Receipt Date: 20180110
  Transmission Date: 20180509
  Serious: Yes (Hospitalization)
  Sender: FDA-Public Use
  Company Number: GR-EPIC PHARMA LLC-2017EPC02099

PATIENT
  Age: 43 Year
  Sex: Male

DRUGS (6)
  1. ALPRAZOLAM. [Suspect]
     Active Substance: ALPRAZOLAM
     Route: 065
  2. OLANZAPINE. [Suspect]
     Active Substance: OLANZAPINE
     Route: 065
  3. TRIHEXYPHENIDYL [Suspect]
     Active Substance: TRIHEXYPHENIDYL
     Route: 065
  4. METHADONE HYDROCHLORIDE. [Suspect]
     Active Substance: METHADONE HYDROCHLORIDE
     Indication: DRUG DEPENDENCE
     Dosage: 20 MG, 1X/DAY
     Route: 048
  5. CANNABIS [Concomitant]
     Active Substance: CANNABIS SATIVA SUBSP. INDICA TOP
     Route: 065
  6. AMPHETAMINES [Concomitant]
     Active Substance: AMPHETAMINE
     Route: 065

REACTIONS (5)
  - Respiratory failure [Recovered/Resolved]
  - Coma [Recovered/Resolved]
  - Bezoar [Recovered/Resolved]
  - Overdose [Recovered/Resolved]
  - Poisoning [Recovered/Resolved]
